FAERS Safety Report 6642179-7 (Version None)
Quarter: 2010Q1

REPORT INFORMATION
  Report Type: 
  Country: None (occurrence: None)
  Receive Date: 20100319
  Receipt Date: 20100308
  Transmission Date: 20100710
  Serious: Yes (Other)
  Sender: FDA-Public Use
  Company Number: US-PFIZER INC-2010026204

PATIENT
  Sex: Male

DRUGS (1)
  1. SUTENT [Suspect]
     Indication: METASTATIC RENAL CELL CARCINOMA
     Dosage: 50 MG, 1X/DAY, CYCLE 4/2
     Dates: start: 20100205, end: 20100304

REACTIONS (5)
  - BLOOD URINE PRESENT [None]
  - CONFUSIONAL STATE [None]
  - HALLUCINATION [None]
  - OCULAR ICTERUS [None]
  - SLEEP DISORDER [None]
